FAERS Safety Report 7676857-8 (Version None)
Quarter: 2011Q3

REPORT INFORMATION
  Report Type: 
  Country: None (occurrence: None)
  Receive Date: 20110810
  Receipt Date: 20110810
  Transmission Date: 20111222
  Serious: No
  Sender: FDA-Public Use
  Company Number: None

PATIENT
  Sex: Male
  Weight: 68.2 kg

DRUGS (2)
  1. CARBOPLATIN [Suspect]
     Dosage: 194MG
     Dates: end: 20110803
  2. PACLITAXEL [Suspect]
     Dosage: 82MG
     Dates: end: 20110803

REACTIONS (1)
  - LYMPHOCYTE COUNT DECREASED [None]
